FAERS Safety Report 25742516 (Version 1)
Quarter: 2025Q3

REPORT INFORMATION
  Report Type: Other
  Country: US (occurrence: US)
  Receive Date: 20250829
  Receipt Date: 20250829
  Transmission Date: 20251021
  Serious: Yes (Hospitalization)
  Sender: SAPTALIS PHARMACEUTICALS LLC
  Company Number: US-Saptalis Pharmaceuticals LLC-2183508

PATIENT
  Age: 61 Year
  Sex: Female

DRUGS (2)
  1. LIKMEZ [Suspect]
     Active Substance: METRONIDAZOLE
     Indication: Diverticulitis
  2. CIPROFLOXACIN [Concomitant]
     Active Substance: CIPROFLOXACIN

REACTIONS (1)
  - Immune thrombocytopenia [Recovered/Resolved]
